FAERS Safety Report 10013854 (Version 2)
Quarter: 2014Q2

REPORT INFORMATION
  Report Type: Spontaneous
  Country: IT (occurrence: IT)
  Receive Date: 20140316
  Receipt Date: 20140630
  Transmission Date: 20141212
  Serious: Yes (Other)
  Sender: FDA-Public Use
  Company Number: IT-MYLANLABS-2014S1004870

PATIENT
  Age: 50 Year
  Sex: 0

DRUGS (1)
  1. CLOPIDOGREL [Suspect]
     Indication: EMBOLISM ARTERIAL
     Route: 048
     Dates: start: 20140210

REACTIONS (5)
  - Insomnia [Recovered/Resolved]
  - Nausea [Recovered/Resolved]
  - Tachycardia [Recovered/Resolved]
  - Vomiting [Recovered/Resolved]
  - Product substitution issue [Recovered/Resolved]
